FAERS Safety Report 5874606-7 (Version None)
Quarter: 2008Q3

REPORT INFORMATION
  Report Type: 
  Country: None (occurrence: None)
  Receive Date: 20080905
  Receipt Date: 20080905
  Transmission Date: 20090109
  Serious: No
  Sender: FDA-Public Use
  Company Number: None

PATIENT
  Age: 43 Year
  Sex: Female
  Weight: 72.5755 kg

DRUGS (1)
  1. BUDEPRION XL 300 MG TEVA USA [Suspect]
     Indication: DEATH OF RELATIVE
     Dosage: 300MG ONCE IN AM PO
     Route: 048
     Dates: start: 20080610, end: 20080826

REACTIONS (7)
  - ANXIETY [None]
  - CARDIAC FLUTTER [None]
  - CHEST DISCOMFORT [None]
  - HEART RATE IRREGULAR [None]
  - NERVOUSNESS [None]
  - PALPITATIONS [None]
  - PHARMACEUTICAL PRODUCT COMPLAINT [None]
